FAERS Safety Report 7330675-9 (Version None)
Quarter: 2011Q1

REPORT INFORMATION
  Report Type: 
  Country: None (occurrence: None)
  Receive Date: 20110225
  Receipt Date: 20110225
  Transmission Date: 20110831
  Serious: Yes (Hospitalization)
  Sender: FDA-Public Use
  Company Number: None

PATIENT
  Sex: Female

DRUGS (15)
  1. HYDROCHLOROTHIAZIDE [Concomitant]
  2. TYLENOL-500 [Concomitant]
  3. AMLODIPINE [Concomitant]
  4. COMPAZINE [Concomitant]
  5. MULTI-VITAMIN [Concomitant]
  6. DILAUDID [Concomitant]
  7. OMEPRAZOLE [Concomitant]
  8. RAD001 EVEROLIMUS [Suspect]
     Indication: COLORECTAL CANCER
     Dosage: 10 MG PO QD
     Route: 048
     Dates: start: 20100903
  9. AV-951 [Suspect]
     Indication: COLORECTAL CANCER
     Dosage: 1.5 MG PO QD
     Route: 048
     Dates: start: 20100903
  10. KPHOS NEUTRAL [Concomitant]
  11. FERROUS SULFATE TAB [Concomitant]
  12. KCL SLOW RELEASE [Concomitant]
  13. TRAMADOL [Concomitant]
  14. VENTOLIN HFA [Concomitant]
  15. MIRALAX [Concomitant]

REACTIONS (3)
  - DYSPNOEA [None]
  - PLEURAL EFFUSION [None]
  - TACHYCARDIA [None]
